FAERS Safety Report 9876575 (Version 2)
Quarter: 2014Q1

REPORT INFORMATION
  Report Type: Other
  Country: US (occurrence: US)
  Receive Date: 20140206
  Receipt Date: 20140206
  Transmission Date: 20141002
  Serious: No
  Sender: FDA-Public Use
  Company Number: US-ACORDA-ACO_37996_2013

PATIENT
  Sex: Female
  Weight: 90.7 kg

DRUGS (14)
  1. AMPYRA [Suspect]
     Indication: GAIT DISTURBANCE
     Dosage: 10 MG, QD
     Route: 048
     Dates: start: 201307, end: 2013
  2. LYRICA [Suspect]
     Indication: NEURALGIA
     Dosage: 75 MG, BID
     Route: 048
     Dates: start: 2013, end: 2013
  3. LIPTOR [Suspect]
     Indication: BLOOD CHOLESTEROL
     Dosage: UNK,UNK
     Route: 048
     Dates: start: 2013, end: 2013
  4. WELLBUTRIN [Concomitant]
     Indication: PRODUCT USED FOR UNKNOWN INDICATION
     Dosage: 150 MG, 2 IN AM AND 1 IN PM
     Route: 048
  5. TRAZODONE [Concomitant]
     Indication: INSOMNIA
     Dosage: 50 MG, Q HS
     Route: 048
  6. LAMICTAL [Concomitant]
     Indication: PRODUCT USED FOR UNKNOWN INDICATION
     Dosage: 100 MG, TID
     Route: 048
  7. SYNTHROID [Concomitant]
     Indication: PRODUCT USED FOR UNKNOWN INDICATION
     Dosage: 150 MCG, QD
     Route: 048
  8. CYCLOBENZAPRINE [Concomitant]
     Indication: PRODUCT USED FOR UNKNOWN INDICATION
     Dosage: UNK,UNK
     Route: 065
  9. LEXAPRO [Concomitant]
     Indication: PRODUCT USED FOR UNKNOWN INDICATION
     Dosage: UNK,UNK
     Route: 065
  10. OMEPRAZOLE [Concomitant]
     Indication: PRODUCT USED FOR UNKNOWN INDICATION
     Dosage: UNK,UNK
     Route: 065
  11. OMEPRAZOLE [Concomitant]
     Dosage: 20 MG, BID
     Route: 048
  12. AMLODIPINE [Concomitant]
     Indication: PRODUCT USED FOR UNKNOWN INDICATION
     Dosage: 5 MG, QD
     Route: 048
  13. HYDROCHLOROTHIAZIDE, LISINOPRIL [Concomitant]
     Indication: PRODUCT USED FOR UNKNOWN INDICATION
     Dosage: 12.5
     Route: 065
  14. HYDROCHLOROTHIAZIDE, LISINOPRIL [Concomitant]
     Indication: PRODUCT USED FOR UNKNOWN INDICATION
     Dosage: 12.5 MG, QD
     Route: 048

REACTIONS (4)
  - Abdominal discomfort [Recovered/Resolved]
  - Feeling abnormal [Recovered/Resolved]
  - Depressed mood [Unknown]
  - Nausea [Recovered/Resolved]
